FAERS Safety Report 5270298-9 (Version None)
Quarter: 2007Q1

REPORT INFORMATION
  Report Type: 
  Country: None (occurrence: None)
  Receive Date: 20070314
  Receipt Date: 20070226
  Transmission Date: 20070707
  Serious: Yes (Other)
  Sender: FDA-Public Use
  Company Number: 2007EU000518

PATIENT
  Sex: Male
  Weight: 72 kg

DRUGS (11)
  1. PROGRAF [Suspect]
     Indication: RENAL TRANSPLANT
     Dosage: 15 MG, BID, ORAL
     Route: 048
  2. TENORMIN [Concomitant]
  3. LESCOL [Concomitant]
  4. NEXIUM [Concomitant]
  5. ALLOPURINOL [Concomitant]
  6. ACETYLSALICYLZUUR CARDIO [Concomitant]
  7. LORAZEPAM [Concomitant]
  8. FOLIUMZUUR KRING (FOLIC ACID) [Concomitant]
  9. CALCICHEW D3 (COLECALCIFEROL) [Concomitant]
  10. GLUCOSAMINE (COD-LIVER OIL) [Concomitant]
  11. MAGNESIUM CITRATE (MAGNESIUM CITRATE) [Concomitant]

REACTIONS (14)
  - ABDOMINAL PAIN UPPER [None]
  - ARRHYTHMIA [None]
  - ARTHRALGIA [None]
  - ASTHENIA [None]
  - CHEST DISCOMFORT [None]
  - CHEST PAIN [None]
  - DIARRHOEA [None]
  - DIZZINESS [None]
  - DYSPNOEA [None]
  - GINGIVAL DISORDER [None]
  - LIBIDO DECREASED [None]
  - MALAISE [None]
  - NERVOUSNESS [None]
  - PRURITUS [None]
